FAERS Safety Report 4496856-7 (Version None)
Quarter: 2004Q4

REPORT INFORMATION
  Report Type: 
  Country: None (occurrence: None)
  Receive Date: 20041109
  Receipt Date: 20041027
  Transmission Date: 20050328
  Serious: Yes (Other)
  Sender: FDA-Public Use
  Company Number: GB-GLAXOSMITHKLINE-B0350339A

PATIENT
  Sex: Female

DRUGS (1)
  1. FLUTICASONE PROPIONATE [Suspect]
     Route: 045
     Dates: start: 19960101

REACTIONS (7)
  - ANOSMIA [None]
  - CONDITION AGGRAVATED [None]
  - DEAFNESS [None]
  - DRUG INEFFECTIVE [None]
  - OTITIS MEDIA [None]
  - OTOSALPINGITIS [None]
  - RHINITIS [None]
